FAERS Safety Report 13292824 (Version 16)
Quarter: 2021Q1

REPORT INFORMATION
  Report Type: Spontaneous
  Country: FR (occurrence: FR)
  Receive Date: 20170303
  Receipt Date: 20210308
  Transmission Date: 20210419
  Serious: Yes (Death, Hospitalization, Other)
  Sender: FDA-Public Use
  Company Number: FR-ASTRAZENECA-2017SE23099

PATIENT
  Age: 71 Year
  Sex: Male
  Weight: 113.4 kg

DRUGS (64)
  1. FUROSEMIDE. [Concomitant]
     Active Substance: FUROSEMIDE
  2. CUBICIN [Suspect]
     Active Substance: DAPTOMYCIN
     Indication: CHEST SCAN
     Route: 042
     Dates: start: 20170110, end: 20170201
  3. CUBICIN [Suspect]
     Active Substance: DAPTOMYCIN
     Indication: SKIN INFECTION
     Route: 042
     Dates: start: 20170110, end: 20170201
  4. PRIMPERAN [Suspect]
     Active Substance: METOCLOPRAMIDE HYDROCHLORIDE
     Indication: PRODUCT USE IN UNAPPROVED INDICATION
     Dosage: 10 MG, TID (3 DF, TID (1 DF TID))
     Route: 048
     Dates: start: 20161224, end: 20170119
  5. QUESTRAN [Suspect]
     Active Substance: CHOLESTYRAMINE
     Indication: PRODUCT USE IN UNAPPROVED INDICATION
     Route: 048
     Dates: start: 20161216, end: 20170119
  6. ULTRAVIST [Suspect]
     Active Substance: IOPROMIDE
     Indication: CHEST SCAN
     Dosage: 370 MG OF IODINE PER ML
     Route: 042
     Dates: start: 20170116, end: 20170116
  7. LANTUS [Concomitant]
     Active Substance: INSULIN GLARGINE
     Indication: PRODUCT USE IN UNAPPROVED INDICATION
     Route: 065
  8. SYMBICORT [Suspect]
     Active Substance: BUDESONIDE\FORMOTEROL FUMARATE DIHYDRATE
     Indication: PRODUCT USE IN UNAPPROVED INDICATION
     Dosage: 400/12 1 INHALATION PER DAY
     Route: 055
     Dates: start: 20161220, end: 20170119
  9. VANCOMYCIN HYDROCHLORIDE. [Suspect]
     Active Substance: VANCOMYCIN HYDROCHLORIDE
     Indication: PRODUCT USE IN UNAPPROVED INDICATION
     Route: 065
  10. PIPERACILLIN AND TAZOBACTAM [Suspect]
     Active Substance: PIPERACILLIN SODIUM\TAZOBACTAM SODIUM
     Indication: CHEST SCAN
     Route: 042
     Dates: start: 20161204, end: 20170130
  11. PANTOPRAZOLE [Suspect]
     Active Substance: PANTOPRAZOLE
     Indication: SKIN INFECTION
     Route: 042
     Dates: start: 20161225, end: 20170119
  12. TRAMADOL HYDROCHLORID/PARACETAMOL [Suspect]
     Active Substance: ACETAMINOPHEN\TRAMADOL HYDROCHLORIDE
     Indication: PRODUCT USE IN UNAPPROVED INDICATION
     Dosage: 37.5/325 MG, 2 TABLETS FOUR TIMES A DAY
     Route: 048
     Dates: start: 20161201, end: 20170119
  13. QUESTRAN [Suspect]
     Active Substance: CHOLESTYRAMINE
     Indication: SKIN INFECTION
     Route: 048
     Dates: start: 20161216, end: 20170119
  14. PRIMPERAN [Suspect]
     Active Substance: METOCLOPRAMIDE HYDROCHLORIDE
     Indication: CHEST SCAN
     Route: 048
     Dates: start: 20161224, end: 20170119
  15. PANTOPRAZOLE [Suspect]
     Active Substance: PANTOPRAZOLE
     Indication: CHEST SCAN
     Route: 042
     Dates: start: 20161225, end: 20170119
  16. RIFADIN [Suspect]
     Active Substance: RIFAMPIN
     Indication: CHEST SCAN
     Route: 065
  17. NEFOPAM [Suspect]
     Active Substance: NEFOPAM
     Indication: PRODUCT USED FOR UNKNOWN INDICATION
     Route: 042
     Dates: start: 20161202, end: 20170119
  18. NEFOPAM [Suspect]
     Active Substance: NEFOPAM
     Indication: CHEST SCAN
     Route: 042
     Dates: start: 20161202, end: 20170119
  19. KARDEGIC [Concomitant]
     Active Substance: ASPIRIN DL-LYSINE
     Indication: PRODUCT USE IN UNAPPROVED INDICATION
     Route: 065
  20. FUROSEMIDE. [Concomitant]
     Active Substance: FUROSEMIDE
     Indication: PRODUCT USE IN UNAPPROVED INDICATION
     Route: 065
  21. LOPERAMIDE ARROW [Concomitant]
     Active Substance: LOPERAMIDE
  22. PRIMPERAN [Suspect]
     Active Substance: METOCLOPRAMIDE HYDROCHLORIDE
     Indication: PRODUCT USE IN UNAPPROVED INDICATION
     Route: 048
     Dates: start: 20161224, end: 20170119
  23. TRAMADOL HYDROCHLORID/PARACETAMOL [Suspect]
     Active Substance: ACETAMINOPHEN\TRAMADOL HYDROCHLORIDE
     Indication: SKIN INFECTION
     Dosage: 37.5/325 MG, 2 TABLETS FOUR TIMES A DAY
     Route: 048
     Dates: start: 20161201, end: 20170119
  24. BIOGARAN [Suspect]
     Active Substance: ACETAMINOPHEN\TRAMADOL HYDROCHLORIDE
     Indication: PRODUCT USE IN UNAPPROVED INDICATION
     Route: 048
     Dates: start: 20161209, end: 20170119
  25. RIFADIN [Suspect]
     Active Substance: RIFAMPIN
     Indication: PRODUCT USED FOR UNKNOWN INDICATION
     Route: 065
  26. NEFOPAM [Suspect]
     Active Substance: NEFOPAM
     Indication: SKIN INFECTION
     Route: 042
     Dates: start: 20161202, end: 20170119
  27. CHOLESTYRAMINE. [Suspect]
     Active Substance: CHOLESTYRAMINE
     Indication: SKIN INFECTION
     Route: 065
  28. RACECADOTRIL [Suspect]
     Active Substance: RACECADOTRIL
     Indication: CHEST SCAN
     Route: 065
     Dates: start: 20161209, end: 20170119
  29. RACECADOTRIL [Suspect]
     Active Substance: RACECADOTRIL
     Indication: SKIN INFECTION
     Route: 065
     Dates: start: 20161209, end: 20170119
  30. POLARAMINE [Concomitant]
     Active Substance: DEXCHLORPHENIRAMINE MALEATE
     Indication: PRODUCT USED FOR UNKNOWN INDICATION
     Route: 065
  31. PANTOPRAZOLE [Suspect]
     Active Substance: PANTOPRAZOLE
     Indication: PRODUCT USE IN UNAPPROVED INDICATION
     Route: 042
     Dates: start: 20161225, end: 20170119
  32. LINEZOLID. [Suspect]
     Active Substance: LINEZOLID
     Indication: SKIN INFECTION
     Route: 048
     Dates: start: 20161222, end: 20170110
  33. LINEZOLID. [Suspect]
     Active Substance: LINEZOLID
     Indication: CHEST SCAN
     Route: 048
     Dates: start: 20161222, end: 20170110
  34. QUESTRAN [Suspect]
     Active Substance: CHOLESTYRAMINE
     Indication: CHEST SCAN
     Route: 048
     Dates: start: 20161216, end: 20170119
  35. METOCLOPRAMIDE HYDROCHLORIDE. [Suspect]
     Active Substance: METOCLOPRAMIDE HYDROCHLORIDE
     Indication: SKIN INFECTION
     Route: 065
  36. METOCLOPRAMIDE HYDROCHLORIDE. [Suspect]
     Active Substance: METOCLOPRAMIDE HYDROCHLORIDE
     Indication: CHEST SCAN
     Route: 065
  37. RACECADOTRIL [Suspect]
     Active Substance: RACECADOTRIL
     Indication: SKIN INFECTION
     Route: 065
     Dates: start: 20161209, end: 20170119
  38. RACECADOTRIL [Suspect]
     Active Substance: RACECADOTRIL
     Indication: CHEST SCAN
     Route: 065
     Dates: start: 20161209, end: 20170119
  39. DAPTOMYCIN. [Suspect]
     Active Substance: DAPTOMYCIN
     Indication: SKIN INFECTION
     Route: 065
  40. DAPTOMYCIN. [Suspect]
     Active Substance: DAPTOMYCIN
     Indication: SKIN INFECTION
     Route: 065
     Dates: start: 20170110, end: 20170201
  41. DIFFU?K [Concomitant]
     Active Substance: POTASSIUM CHLORIDE
     Indication: PRODUCT USE IN UNAPPROVED INDICATION
     Route: 065
  42. BUDESONIDE. [Suspect]
     Active Substance: BUDESONIDE
     Indication: PRODUCT USED FOR UNKNOWN INDICATION
     Route: 055
     Dates: start: 20161220, end: 20170119
  43. PIPERACILLIN AND TAZOBACTAM [Suspect]
     Active Substance: PIPERACILLIN SODIUM\TAZOBACTAM SODIUM
     Indication: SKIN INFECTION
     Route: 042
     Dates: start: 20161204, end: 20170130
  44. LINEZOLID. [Suspect]
     Active Substance: LINEZOLID
     Indication: SKIN INFECTION
     Dosage: LINEZOLIDE ARROW
     Route: 048
     Dates: start: 20161222, end: 20170110
  45. ULTRAVIST [Suspect]
     Active Substance: IOPROMIDE
     Indication: SKIN INFECTION
     Dosage: 370 MG OF IODINE PER ML
     Route: 042
     Dates: start: 20170116, end: 20170116
  46. RACECADOTRIL [Suspect]
     Active Substance: RACECADOTRIL
     Indication: PRODUCT USED FOR UNKNOWN INDICATION
     Route: 065
     Dates: start: 20161209, end: 20170119
  47. DAPTOMYCIN. [Suspect]
     Active Substance: DAPTOMYCIN
     Indication: CHEST SCAN
     Route: 065
     Dates: start: 20170110, end: 20170201
  48. PRIMPERAN [Suspect]
     Active Substance: METOCLOPRAMIDE HYDROCHLORIDE
     Indication: CHEST SCAN
     Dosage: 10 MG, TID (3 DF, TID (1 DF TID))
     Route: 048
     Dates: start: 20161224, end: 20170119
  49. RIFADIN [Suspect]
     Active Substance: RIFAMPIN
     Indication: SKIN INFECTION
     Route: 065
  50. DAPTOMYCIN. [Suspect]
     Active Substance: DAPTOMYCIN
     Indication: CHEST SCAN
     Route: 065
  51. DUPHALAC [Concomitant]
     Active Substance: LACTULOSE
     Indication: PRODUCT USE IN UNAPPROVED INDICATION
     Route: 065
  52. LOPERAMIDE [Concomitant]
     Active Substance: LOPERAMIDE
     Indication: PRODUCT USE IN UNAPPROVED INDICATION
  53. LOVENOX [Concomitant]
     Active Substance: ENOXAPARIN SODIUM
     Indication: PRODUCT USED FOR UNKNOWN INDICATION
     Route: 065
     Dates: start: 20170114, end: 20170114
  54. UMULINE ZINC COMPOSE [Concomitant]
     Active Substance: INSULIN HUMAN
     Indication: PRODUCT USE IN UNAPPROVED INDICATION
     Route: 065
  55. INSULIN HUMAN [Concomitant]
     Active Substance: INSULIN HUMAN
  56. CUBICIN [Suspect]
     Active Substance: DAPTOMYCIN
     Indication: PRODUCT USE IN UNAPPROVED INDICATION
     Route: 042
     Dates: start: 20170110, end: 20170201
  57. PRIMPERAN [Suspect]
     Active Substance: METOCLOPRAMIDE HYDROCHLORIDE
     Indication: SKIN INFECTION
     Dosage: 10 MG, TID (3 DF, TID (1 DF TID))
     Route: 048
     Dates: start: 20161224, end: 20170119
  58. PRIMPERAN [Suspect]
     Active Substance: METOCLOPRAMIDE HYDROCHLORIDE
     Indication: SKIN INFECTION
     Route: 048
     Dates: start: 20161224, end: 20170119
  59. LINEZOLID. [Suspect]
     Active Substance: LINEZOLID
     Indication: CHEST SCAN
     Dosage: LINEZOLIDE ARROW
     Route: 048
     Dates: start: 20161222, end: 20170110
  60. MEDISOL (NEFOPAM) [Suspect]
     Active Substance: NEFOPAM
     Indication: PRODUCT USE IN UNAPPROVED INDICATION
     Route: 042
     Dates: start: 20161202, end: 20170119
  61. TRAMADOL HYDROCHLORID/PARACETAMOL [Suspect]
     Active Substance: ACETAMINOPHEN\TRAMADOL HYDROCHLORIDE
     Indication: CHEST SCAN
     Dosage: 37.5/325 MG, 2 TABLETS FOUR TIMES A DAY
     Route: 048
     Dates: start: 20161201, end: 20170119
  62. CHOLESTYRAMINE. [Suspect]
     Active Substance: CHOLESTYRAMINE
     Indication: CHEST SCAN
     Route: 065
  63. RACECADOTRIL [Suspect]
     Active Substance: RACECADOTRIL
     Indication: PRODUCT USED FOR UNKNOWN INDICATION
     Route: 065
     Dates: start: 20161209, end: 20170119
  64. POTASSIUM CHLORIDE. [Concomitant]
     Active Substance: POTASSIUM CHLORIDE

REACTIONS (18)
  - Hepatic encephalopathy [Fatal]
  - Eosinophilia [Fatal]
  - Rectal haemorrhage [Fatal]
  - Pulmonary interstitial emphysema syndrome [Fatal]
  - Rash maculo-papular [Fatal]
  - Generalised oedema [Fatal]
  - Acute kidney injury [Fatal]
  - Eczema [Fatal]
  - Diffuse alveolar damage [Fatal]
  - Eosinophilic pneumonia [Fatal]
  - Dyspnoea [Fatal]
  - Glomerular filtration rate decreased [Fatal]
  - Restlessness [Fatal]
  - Death [Fatal]
  - Hyperammonaemia [Fatal]
  - Thrombocytopenia [Fatal]
  - Alveolar lung disease [Fatal]
  - Sepsis [Fatal]

NARRATIVE: CASE EVENT DATE: 20161227
